FAERS Safety Report 5400193-3 (Version None)
Quarter: 2007Q3

REPORT INFORMATION
  Report Type: 
  Country: None (occurrence: None)
  Receive Date: 20070730
  Receipt Date: 20070724
  Transmission Date: 20080115
  Serious: Yes (Hospitalization)
  Sender: FDA-Public Use
  Company Number: FR-AVENTIS-200712370FR

PATIENT
  Age: 74 Year
  Sex: Female

DRUGS (10)
  1. LASILIX                            /00032601/ [Suspect]
     Indication: DRUG USE FOR UNKNOWN INDICATION
     Route: 048
     Dates: start: 20060101
  2. PLAVIX [Suspect]
     Indication: MYOCARDIAL INFARCTION
     Route: 048
  3. KARDEGIC                           /00002703/ [Suspect]
     Indication: MYOCARDIAL INFARCTION
     Route: 048
  4. KALEORID [Suspect]
     Route: 048
  5. CARDENSIEL [Suspect]
     Route: 048
  6. KENZEN [Suspect]
     Route: 048
  7. INEGY [Suspect]
     Route: 048
  8. OMEPRAZOLE [Suspect]
     Route: 048
  9. MOLSIDOMINE [Concomitant]
     Route: 048
     Dates: start: 20060101
  10. DOMPERIDONE [Concomitant]
     Dates: start: 20070101

REACTIONS (1)
  - APHTHOUS STOMATITIS [None]
